FAERS Safety Report 12692911 (Version 1)
Quarter: 2016Q3

REPORT INFORMATION
  Report Type: Spontaneous
  Country: US (occurrence: None)
  Receive Date: 20160826
  Receipt Date: 20160826
  Transmission Date: 20161109
  Serious: Yes (Disabling)
  Sender: FDA-Public Use
  Company Number: None

PATIENT
  Age: 17 Year
  Sex: Female
  Weight: 99.79 kg

DRUGS (1)
  1. NEXPLANON [Suspect]
     Active Substance: ETONOGESTREL
     Indication: CONTRACEPTION
     Dosage: GIVEN INTO/UNDER THE SKIN
     Route: 058
     Dates: start: 20140626, end: 20150513

REACTIONS (14)
  - Chest pain [None]
  - Pain in extremity [None]
  - Dysstasia [None]
  - Urinary tract infection [None]
  - Gait disturbance [None]
  - Menorrhagia [None]
  - Dyspnoea [None]
  - Abdominal pain upper [None]
  - Weight increased [None]
  - Mood altered [None]
  - Depression [None]
  - Amenorrhoea [None]
  - Obesity [None]
  - Quality of life decreased [None]

NARRATIVE: CASE EVENT DATE: 20140626
